FAERS Safety Report 7677065-7 (Version None)
Quarter: 2011Q3

REPORT INFORMATION
  Report Type: 
  Country: None (occurrence: None)
  Receive Date: 20110811
  Receipt Date: 20110727
  Transmission Date: 20111222
  Serious: Yes (Other)
  Sender: FDA-Public Use
  Company Number: CA-ELI_LILLY_AND_COMPANY-CA201107007221

PATIENT
  Sex: Female

DRUGS (11)
  1. ATIVAN [Concomitant]
  2. ZYPREXA [Suspect]
     Indication: BIPOLAR DISORDER
     Dosage: 5 MG, EACH EVENING
     Dates: start: 20010111
  3. METOPROLOL TARTRATE [Concomitant]
  4. ZYPREXA [Suspect]
     Dosage: 10 MG, EACH EVENING
  5. ZYPREXA [Suspect]
     Dosage: 7.5 MG, EACH EVENING
  6. LUVOX [Concomitant]
  7. GABAPENTIN [Concomitant]
  8. LITHIUM CARBONATE [Concomitant]
  9. DIAZEPAM [Concomitant]
  10. SEROQUEL [Concomitant]
  11. LAMOTRIGINE [Concomitant]

REACTIONS (5)
  - MENOMETRORRHAGIA [None]
  - HYPERTENSION [None]
  - HAEMATEMESIS [None]
  - DIABETES MELLITUS [None]
  - TINNITUS [None]
